FAERS Safety Report 5769892-8 (Version None)
Quarter: 2008Q2

REPORT INFORMATION
  Report Type: 
  Country: None (occurrence: None)
  Receive Date: 20080613
  Receipt Date: 20080412
  Transmission Date: 20081010
  Serious: No
  Sender: FDA-Public Use
  Company Number: US-ABBOTT-08P-163-0447047-00

PATIENT
  Sex: Female

DRUGS (2)
  1. HUMIRA [Suspect]
     Indication: CROHN'S DISEASE
     Route: 058
     Dates: start: 20080315
  2. HUMIRA [Suspect]
     Indication: GASTROINTESTINAL DISORDER

REACTIONS (3)
  - ABDOMINAL DISTENSION [None]
  - PARAESTHESIA [None]
  - WEIGHT INCREASED [None]
